FAERS Safety Report 9379954 (Version 3)
Quarter: 2013Q3

REPORT INFORMATION
  Report Type: Spontaneous
  Country: US (occurrence: None)
  Receive Date: 20130627
  Receipt Date: 20130716
  Transmission Date: 20140515
  Serious: Yes (Hospitalization, Other)
  Sender: FDA-Public Use
  Company Number: ADR-2013-01065

PATIENT
  Age: 63 Year
  Sex: Female

DRUGS (3)
  1. LIORESAL INTRATHECAL [Suspect]
     Indication: MUSCLE SPASTICITY
  2. LIORESAL INTRATHECAL [Suspect]
     Indication: STIFF PERSON SYNDROME
  3. VALIUM (UNSPECIFIED DOSE) [Concomitant]

REACTIONS (6)
  - Malaise [None]
  - Nausea [None]
  - Food intolerance [None]
  - Drug ineffective [None]
  - Dehydration [None]
  - Decreased appetite [None]
